FAERS Safety Report 20846310 (Version 1)
Quarter: 2022Q2

REPORT INFORMATION
  Report Type: Spontaneous
  Country: AU (occurrence: AU)
  Receive Date: 20220518
  Receipt Date: 20220518
  Transmission Date: 20220720
  Serious: Yes (Hospitalization, Other)
  Sender: FDA-Public Use
  Company Number: AU-SA-SAC20220513001689

PATIENT
  Sex: Male

DRUGS (3)
  1. TOUJEO [Suspect]
     Active Substance: INSULIN GLARGINE
     Dosage: 64 IU
     Dates: start: 2018
  2. ATACAND [Concomitant]
     Active Substance: CANDESARTAN CILEXETIL
  3. NOVORAPID [Concomitant]
     Active Substance: INSULIN ASPART

REACTIONS (5)
  - Myocardial infarction [Unknown]
  - Near death experience [Unknown]
  - Hyperhidrosis [Unknown]
  - Frustration tolerance decreased [Unknown]
  - Blood glucose decreased [Unknown]

NARRATIVE: CASE EVENT DATE: 20220407
